FAERS Safety Report 6826844-4 (Version None)
Quarter: 2010Q3

REPORT INFORMATION
  Report Type: 
  Country: None (occurrence: None)
  Receive Date: 20100709
  Receipt Date: 20100630
  Transmission Date: 20110219
  Serious: Yes (Hospitalization)
  Sender: FDA-Public Use
  Company Number: US-JNJFOC-20100508454

PATIENT
  Sex: Female
  Weight: 67.59 kg

DRUGS (2)
  1. REMICADE [Suspect]
     Indication: COLITIS ULCERATIVE
     Route: 042
  2. MESALAMINE [Concomitant]
     Indication: COLITIS ULCERATIVE
     Route: 042

REACTIONS (3)
  - CELLULITIS [None]
  - CORNEAL DISORDER [None]
  - SEPSIS [None]
